FAERS Safety Report 11562305 (Version 1)
Quarter: 2015Q3

REPORT INFORMATION
  Report Type: Spontaneous
  Country: JP (occurrence: JP)
  Receive Date: 20150928
  Receipt Date: 20150928
  Transmission Date: 20151125
  Serious: Yes (Hospitalization)
  Sender: FDA-Public Use
  Company Number: JP-BAYER-2015-426246

PATIENT
  Sex: Male

DRUGS (1)
  1. STIVARGA [Suspect]
     Active Substance: REGORAFENIB
     Indication: RECTAL CANCER
     Dosage: 160 MG, QD, 3 WEEKS ON AND 1 WEEK OFF
     Route: 048

REACTIONS (4)
  - Renal failure [Recovering/Resolving]
  - Drug-induced liver injury [None]
  - Disseminated intravascular coagulation [Recovering/Resolving]
  - Hepatitis fulminant [Recovering/Resolving]
